FAERS Safety Report 8955127 (Version 1)
Quarter: 2012Q4

REPORT INFORMATION
  Report Type: 
  Country: IE (occurrence: IE)
  Receive Date: 20121207
  Receipt Date: 20121207
  Transmission Date: 20130627
  Serious: Yes (Hospitalization, Other)
  Sender: FDA-Public Use
  Company Number: IE-ASTRAZENECA-2012SE91175

PATIENT
  Age: 3 Month
  Sex: Male

DRUGS (3)
  1. SYNAGIS [Suspect]
     Indication: PREMATURE BABY
     Route: 030
     Dates: start: 20121030
  2. VITAMIN D [Concomitant]
  3. ABIDEC [Concomitant]

REACTIONS (1)
  - Bronchiolitis [Recovered/Resolved]
